FAERS Safety Report 25085926 (Version 1)
Quarter: 2025Q1

REPORT INFORMATION
  Report Type: Spontaneous
  Country: US (occurrence: US)
  Receive Date: 20250317
  Receipt Date: 20250317
  Transmission Date: 20250408
  Serious: No
  Sender: NOVARTIS
  Company Number: US-002147023-NVSC2025US040849

PATIENT
  Age: 36 Year
  Sex: Female

DRUGS (1)
  1. FABHALTA [Suspect]
     Active Substance: IPTACOPAN HYDROCHLORIDE
     Indication: IgA nephropathy
     Route: 065
     Dates: start: 202409

REACTIONS (4)
  - Nasopharyngitis [Unknown]
  - Renal pain [Recovered/Resolved]
  - Pain [Recovered/Resolved]
  - Glomerular filtration rate increased [Recovering/Resolving]

NARRATIVE: CASE EVENT DATE: 20250101
